FAERS Safety Report 17702872 (Version 1)
Quarter: 2020Q2

REPORT INFORMATION
  Report Type: Spontaneous
  Country: SE (occurrence: SE)
  Receive Date: 20200423
  Receipt Date: 20200423
  Transmission Date: 20200714
  Serious: No
  Sender: FDA-Public Use
  Company Number: SE-JAZZ-2020-SE-003297

PATIENT
  Age: 28 Year
  Sex: Male
  Weight: 68 kg

DRUGS (1)
  1. XYREM [Suspect]
     Active Substance: SODIUM OXYBATE
     Indication: NARCOLEPSY
     Dosage: 2.5 (500 MG/ML ORAL SOLUTION)
     Route: 048
     Dates: start: 2013

REACTIONS (1)
  - Ear pruritus [Recovering/Resolving]

NARRATIVE: CASE EVENT DATE: 2013
